FAERS Safety Report 21380509 (Version 1)
Quarter: 2022Q3

REPORT INFORMATION
  Report Type: Spontaneous
  Country: US (occurrence: US)
  Receive Date: 20220927
  Receipt Date: 20220927
  Transmission Date: 20221026
  Serious: No
  Sender: FDA-Public Use
  Company Number: US-PFIZER INC-202201185003

PATIENT
  Age: 74 Year
  Sex: Female

DRUGS (3)
  1. PAXLOVID [Suspect]
     Active Substance: NIRMATRELVIR\RITONAVIR
     Indication: COVID-19 treatment
     Dosage: [PF-07321332 300 MG]/[RITONAVIR 100 MG]; 2X/DAY
     Dates: start: 20220918, end: 202209
  2. SYNTHROID [Concomitant]
     Active Substance: LEVOTHYROXINE SODIUM
     Indication: Hypothyroidism
     Dosage: 50 UG, 1X/DAY [SEVERAL YEARS AGO STARTED THIS]
  3. MEMANTINE [Concomitant]
     Active Substance: MEMANTINE
     Indication: Memory impairment
     Dosage: UNK, 2X/DAY (TWICE DAILY STANDARD DOSAGE) COUPLE OF YEARS AGO STARTED THIS

REACTIONS (2)
  - Therapeutic product effect incomplete [Not Recovered/Not Resolved]
  - Cough [Recovering/Resolving]

NARRATIVE: CASE EVENT DATE: 20220901
